FAERS Safety Report 6644332-5 (Version None)
Quarter: 2010Q1

REPORT INFORMATION
  Report Type: 
  Country: None (occurrence: None)
  Receive Date: 20100322
  Receipt Date: 20100310
  Transmission Date: 20100710
  Serious: Yes (Other)
  Sender: FDA-Public Use
  Company Number: PHHY2010JP11971

PATIENT
  Sex: Female

DRUGS (3)
  1. BROMOCRIPTINE MESYLATE [Suspect]
     Route: 048
  2. ARICEPT [Concomitant]
     Route: 048
  3. DEPAKENE [Concomitant]
     Dosage: UNK
     Route: 048
     Dates: end: 20090901

REACTIONS (2)
  - PLATELET COUNT DECREASED [None]
  - WHITE BLOOD CELL COUNT DECREASED [None]
